FAERS Safety Report 9817530 (Version 2)
Quarter: 2014Q1

REPORT INFORMATION
  Report Type: Spontaneous
  Country: BE (occurrence: BE)
  Receive Date: 20140115
  Receipt Date: 20140115
  Transmission Date: 20141002
  Serious: Yes (Other)
  Sender: FDA-Public Use
  Company Number: BE-AMGEN-BELSP2013014388

PATIENT
  Age: 56 Year
  Sex: Female

DRUGS (14)
  1. ENBREL [Suspect]
     Indication: PSORIASIS
     Dosage: 50 MG, UNK
     Route: 058
     Dates: end: 201302
  2. ENBREL [Suspect]
     Dosage: 50 MG, UNK
     Route: 065
     Dates: start: 2013, end: 201305
  3. SPASMOMEN [Concomitant]
     Dosage: 40 MG, THRICE A DAY
  4. SIFROL [Concomitant]
     Dosage: 18 MG, UNK
  5. SELOZOK [Concomitant]
     Dosage: 50 MG, ONCE A DAY
  6. EPSIPAM [Concomitant]
     Dosage: 25 MG, ONCE A DAY
  7. RIVOTRIL [Concomitant]
     Dosage: 6.5 GTT, ONCE A DAY
  8. TRADONAL [Concomitant]
     Dosage: 50 MG, QD
  9. CONTRAMAL [Concomitant]
     Dosage: UNK
  10. CALCIUM [Concomitant]
     Dosage: UNK
  11. MAGNESIUM [Concomitant]
     Dosage: UNK
  12. NEXIAM                             /01479302/ [Concomitant]
     Dosage: UNK UNK, QD
  13. MOBIC [Concomitant]
     Dosage: UNK, ONCE A DAY
  14. PRAXILENE [Concomitant]
     Dosage: UNK

REACTIONS (7)
  - Foot fracture [Recovering/Resolving]
  - Raynaud^s phenomenon [Not Recovered/Not Resolved]
  - Alopecia [Not Recovered/Not Resolved]
  - Headache [Not Recovered/Not Resolved]
  - Platelet count decreased [Not Recovered/Not Resolved]
  - Tonsillitis [Unknown]
  - Psoriasis [Not Recovered/Not Resolved]
